FAERS Safety Report 21216633 (Version 1)
Quarter: 2022Q3

REPORT INFORMATION
  Report Type: Spontaneous
  Country: US (occurrence: None)
  Receive Date: 20220816
  Receipt Date: 20220816
  Transmission Date: 20221026
  Serious: No
  Sender: FDA-Public Use
  Company Number: US-ROCHE-3060038

PATIENT
  Age: 49 Year
  Sex: Female

DRUGS (3)
  1. PHESGO [Suspect]
     Active Substance: HYALURONIDASE-ZZXF\PERTUZUMAB\TRASTUZUMAB
     Indication: Triple positive breast cancer
     Route: 058
     Dates: start: 20211007
  2. LETROZOLE [Concomitant]
     Active Substance: LETROZOLE
     Indication: Triple positive breast cancer
     Route: 048
     Dates: start: 202103
  3. TAXOL [Concomitant]
     Active Substance: PACLITAXEL
     Indication: Triple positive breast cancer
     Route: 042
     Dates: start: 20211007, end: 20211223

REACTIONS (2)
  - Off label use [Unknown]
  - Unevaluable event [Unknown]

NARRATIVE: CASE EVENT DATE: 20211007
